FAERS Safety Report 9113317 (Version 1)
Quarter: 2013Q1

REPORT INFORMATION
  Report Type: Report from Study
  Country: US (occurrence: US)
  Receive Date: 20130131
  Receipt Date: 20130131
  Transmission Date: 20140127
  Serious: Yes (Other)
  Sender: FDA-Public Use
  Company Number: US-ROCHE-1004365

PATIENT
  Age: 65 Year
  Sex: Female
  Weight: 55.84 kg

DRUGS (11)
  1. ACTEMRA [Suspect]
     Indication: RHEUMATOID ARTHRITIS
     Route: 042
     Dates: start: 20110501
  2. ACTEMRA [Suspect]
     Route: 042
     Dates: start: 20120606
  3. ACTEMRA [Suspect]
     Route: 042
     Dates: start: 20120705
  4. ACTEMRA [Suspect]
     Route: 042
     Dates: start: 20120801
  5. ACTEMRA [Suspect]
     Route: 042
     Dates: start: 20120829
  6. LOSARTAN [Concomitant]
     Route: 065
  7. TOPROL XL [Concomitant]
     Route: 065
  8. OMEPRAZOLE [Concomitant]
     Route: 065
  9. IBUPROFEN [Concomitant]
     Route: 065
  10. KEFLEX [Concomitant]
     Indication: LOCALISED INFECTION
     Route: 065
     Dates: start: 20121129, end: 20121210
  11. PREDNISONE [Concomitant]

REACTIONS (6)
  - Gangrene [Unknown]
  - Toe amputation [Unknown]
  - Laryngitis [Not Recovered/Not Resolved]
  - Ear pruritus [Recovered/Resolved]
  - Pruritus [Recovered/Resolved]
  - Drug ineffective [Unknown]
